FAERS Safety Report 9336313 (Version 3)
Quarter: 2013Q3

REPORT INFORMATION
  Report Type: Report from Study
  Country: US (occurrence: US)
  Receive Date: 20130607
  Receipt Date: 20130704
  Transmission Date: 20140515
  Serious: No
  Sender: FDA-Public Use
  Company Number: US-009507513-1306USA002350

PATIENT
  Sex: Male

DRUGS (3)
  1. VICTRELIS [Suspect]
     Indication: HEPATITIS C
     Route: 048
  2. COPEGUS [Suspect]
     Indication: CHRONIC HEPATITIS C
     Dosage: 1200 MG DAILY/ DAILY DIVIDED 600/600
     Dates: start: 20130404
  3. PEGASYS [Suspect]
     Indication: CHRONIC HEPATITIS C
     Dosage: PROCLICK, 180 MICROGRAM, 1 IN 1 WEEK
     Dates: start: 20130404

REACTIONS (11)
  - Pain [Unknown]
  - Haemorrhoidal haemorrhage [Unknown]
  - Feeling hot [Unknown]
  - Product taste abnormal [Unknown]
  - Fatigue [Unknown]
  - Lip swelling [Unknown]
  - Dry skin [Unknown]
  - Pyrexia [Unknown]
  - Headache [Unknown]
  - White blood cell count decreased [Unknown]
  - Platelet count decreased [Unknown]
